FAERS Safety Report 18628346 (Version 1)
Quarter: 2020Q4

REPORT INFORMATION
  Report Type: Spontaneous
  Country: US (occurrence: US)
  Receive Date: 20201217
  Receipt Date: 20201217
  Transmission Date: 20210114
  Serious: No
  Sender: FDA-Public Use
  Company Number: US-TEVA-2020-US-1859380

PATIENT
  Sex: Male

DRUGS (1)
  1. GUANFACINE. [Suspect]
     Active Substance: GUANFACINE
     Dosage: FORM OF ADMIN: EXTENDED-RELEASE TABLET
     Route: 065

REACTIONS (3)
  - Condition aggravated [Unknown]
  - Product availability issue [Unknown]
  - Adverse event [Unknown]
